FAERS Safety Report 6235450-4 (Version None)
Quarter: 2009Q2

REPORT INFORMATION
  Report Type: 
  Country: None (occurrence: None)
  Receive Date: 20090618
  Receipt Date: 20090421
  Transmission Date: 20091009
  Serious: No
  Sender: FDA-Public Use
  Company Number: US-ASTRAZENECA-2009UW10030

PATIENT
  Age: 71 Year
  Sex: Female

DRUGS (1)
  1. RHINOCORT [Suspect]
     Route: 045

REACTIONS (1)
  - LIVER DISORDER [None]
